FAERS Safety Report 8309343-2 (Version None)
Quarter: 2012Q2

REPORT INFORMATION
  Report Type: 
  Country: None (occurrence: None)
  Receive Date: 20120425
  Receipt Date: 20120416
  Transmission Date: 20120825
  Serious: Yes (Hospitalization)
  Sender: FDA-Public Use
  Company Number: US-ASTRAZENECA-2012SE25009

PATIENT
  Sex: Female

DRUGS (14)
  1. PRAVASTATIN SODIUM [Concomitant]
  2. ISOSORBIDE MNER [Concomitant]
  3. IRON [Concomitant]
  4. VENTOLIN HFT [Concomitant]
     Indication: ASTHMA
  5. AMLODIPINE BESYLATE AND BENAZEPRIL HCL [Concomitant]
  6. AMLODIPINE BESYLATE AND BENAZEPRIL HCL [Concomitant]
  7. PEPTIDASE [Concomitant]
  8. DIAZEPAM [Concomitant]
     Indication: PAIN
  9. VITAMIN D [Concomitant]
     Dosage: 200 UNIT, QD
  10. SYMBICORT [Suspect]
     Dosage: 80/4.5 MCG, 2 PUFF, TWO TIMES A DAY
     Route: 055
     Dates: start: 20090101
  11. FUROSEMIDE [Concomitant]
  12. SYMBICORT [Suspect]
     Indication: ASTHMA
     Dosage: 80/4.5 MCG, 1 PUFF, TWO TIMES A DAY
     Route: 055
     Dates: start: 20090101
  13. TRAMADOL HCL [Concomitant]
     Indication: PAIN
  14. MEDIMUZOLE [Concomitant]

REACTIONS (6)
  - INTENTIONAL DRUG MISUSE [None]
  - DEVICE MISUSE [None]
  - OFF LABEL USE [None]
  - PAIN [None]
  - MEMORY IMPAIRMENT [None]
  - BRONCHOSPASM [None]
